FAERS Safety Report 20144074 (Version 1)
Quarter: 2021Q4

REPORT INFORMATION
  Report Type: Spontaneous
  Country: US (occurrence: US)
  Receive Date: 20211203
  Receipt Date: 20211203
  Transmission Date: 20220303
  Serious: No
  Sender: FDA-Public Use
  Company Number: US-009507513-2111USA001691

PATIENT
  Sex: Male

DRUGS (3)
  1. KEYTRUDA [Suspect]
     Active Substance: PEMBROLIZUMAB
     Indication: Peritoneal mesothelioma malignant
     Dosage: 200 MILLIGRAM, EVERY 3 WEEKS
  2. PEMETREXED [Concomitant]
     Active Substance: PEMETREXED
     Indication: Peritoneal mesothelioma malignant
     Dosage: UNK, EVERY 3 WEEKS (Q3W) FOR 13 TOTAL TREATMENTS OVER 8 MONTHS
  3. CARBOPLATIN [Concomitant]
     Active Substance: CARBOPLATIN
     Indication: Peritoneal mesothelioma malignant
     Dosage: UNK, EVERY 3 WEEKS (Q3W) FOR 13 TOTAL TREATMENTS OVER 8 MONTHS

REACTIONS (1)
  - Off label use [Unknown]
